FAERS Safety Report 25884051 (Version 1)
Quarter: 2025Q4

REPORT INFORMATION
  Report Type: Spontaneous
  Country: US (occurrence: None)
  Receive Date: 20251003
  Receipt Date: 20251003
  Transmission Date: 20260119
  Serious: Yes (Life-Threatening, Hospitalization, Other)
  Sender: FDA-CTU
  Company Number: None

PATIENT
  Age: 41 Year
  Sex: Male
  Weight: 78.75 kg

DRUGS (5)
  1. FLAGYL [Suspect]
     Active Substance: METRONIDAZOLE\METRONIDAZOLE HYDROCHLORIDE
  2. ZOFRAN [Concomitant]
     Active Substance: ONDANSETRON HYDROCHLORIDE
  3. PREDNISONE [Concomitant]
     Active Substance: PREDNISONE
  4. BIAXIN [Concomitant]
     Active Substance: CLARITHROMYCIN
  5. BENZOIC ACID [Concomitant]
     Active Substance: BENZOIC ACID

REACTIONS (4)
  - Breath sounds abnormal [None]
  - Fatigue [None]
  - Hyperhidrosis [None]
  - Muscle swelling [None]

NARRATIVE: CASE EVENT DATE: 20250928
